FAERS Safety Report 13421161 (Version 1)
Quarter: 2017Q2

REPORT INFORMATION
  Report Type: Spontaneous
  Country: US (occurrence: US)
  Receive Date: 20170410
  Receipt Date: 20170410
  Transmission Date: 20170830
  Serious: Yes (Hospitalization, Other)
  Sender: FDA-Public Use
  Company Number: US-TORRENT-00002651

PATIENT
  Age: 9 Year
  Sex: Male

DRUGS (4)
  1. LABETALOL [Concomitant]
     Active Substance: LABETALOL\LABETALOL HYDROCHLORIDE
  2. RISPERIDONE. [Suspect]
     Active Substance: RISPERIDONE
  3. METHYLPHENIDATE HYDROCHLORIDE. [Suspect]
     Active Substance: METHYLPHENIDATE HYDROCHLORIDE
  4. CLONIDINE. [Concomitant]
     Active Substance: CLONIDINE

REACTIONS (3)
  - Insomnia [Recovering/Resolving]
  - Choreoathetosis [Recovering/Resolving]
  - Dyskinesia [Recovering/Resolving]
